FAERS Safety Report 20814129 (Version 1)
Quarter: 2022Q2

REPORT INFORMATION
  Report Type: Spontaneous
  Country: IN (occurrence: IN)
  Receive Date: 20220511
  Receipt Date: 20220511
  Transmission Date: 20220721
  Serious: Yes (Death)
  Sender: FDA-Public Use
  Company Number: IN-PFIZER INC-2021137089

PATIENT
  Age: 57 Year
  Sex: Female

DRUGS (2)
  1. PALBOCICLIB [Suspect]
     Active Substance: PALBOCICLIB
     Indication: Breast cancer metastatic
     Dosage: 125 MG, 1X/DAY 21 DAYS ONE WEEK GAP
     Route: 048
     Dates: start: 20201126, end: 20220421
  2. FASLODEX [Concomitant]
     Active Substance: FULVESTRANT
     Dosage: 250 MG, BOTH GLUTEAL REGION
     Route: 030

REACTIONS (13)
  - Death [Fatal]
  - Abdominal pain upper [Unknown]
  - Oropharyngeal pain [Unknown]
  - Pruritus [Unknown]
  - Anxiety [Unknown]
  - Palpitations [Unknown]
  - Pain in extremity [Unknown]
  - Arthralgia [Unknown]
  - Fatigue [Unknown]
  - Blood pressure systolic increased [Unknown]
  - Autonomic nervous system imbalance [Unknown]
  - Gastrointestinal motility disorder [Unknown]
  - Cough [Unknown]
